FAERS Safety Report 11439043 (Version 1)
Quarter: 2015Q3

REPORT INFORMATION
  Report Type: Spontaneous
  Country: US (occurrence: US)
  Receive Date: 20150901
  Receipt Date: 20150901
  Transmission Date: 20151125
  Serious: No
  Sender: FDA-Public Use
  Company Number: US-ROCHE-1084978

PATIENT
  Sex: Female

DRUGS (3)
  1. TELAPREVIR [Suspect]
     Active Substance: TELAPREVIR
     Indication: HEPATITIS C
     Route: 065
     Dates: start: 20120605
  2. RIBAVIRIN. [Suspect]
     Active Substance: RIBAVIRIN
     Indication: HEPATITIS C
     Route: 065
     Dates: start: 20120605
  3. PEG-INTERFERON ALFA 2A [Suspect]
     Active Substance: PEGINTERFERON ALFA-2A
     Indication: HEPATITIS C
     Dosage: FORM: PROCLICK
     Route: 065
     Dates: start: 20120605

REACTIONS (9)
  - Dizziness [Unknown]
  - Nasopharyngitis [Unknown]
  - Anal pruritus [Unknown]
  - Nausea [Unknown]
  - Asthenia [Unknown]
  - Hallucination [Unknown]
  - Dyspepsia [Unknown]
  - Proctalgia [Unknown]
  - Injection site discolouration [Unknown]
